FAERS Safety Report 4764662-1 (Version None)
Quarter: 2005Q3

REPORT INFORMATION
  Report Type: 
  Country: None (occurrence: None)
  Receive Date: 20050909
  Receipt Date: 20050902
  Transmission Date: 20060218
  Serious: Yes (Hospitalization)
  Sender: FDA-Public Use
  Company Number: HCM-0105

PATIENT
  Age: 60 Year
  Sex: Male

DRUGS (10)
  1. TOPOTECAN [Suspect]
     Dosage: 1.24MG PER DAY
     Route: 065
     Dates: start: 20020325, end: 20020329
  2. LOXOPROFEN SODIUM [Concomitant]
     Dosage: 180MG PER DAY
     Route: 048
     Dates: start: 20011126, end: 20020327
  3. SUCRALFATE [Concomitant]
     Dosage: 3G PER DAY
     Dates: start: 20011126, end: 20020327
  4. PROCHLORPERAZINE MALEATE [Concomitant]
     Dosage: 15MG PER DAY
     Dates: start: 20011217, end: 20020327
  5. ALUMINIUM + MAGNESIUM HYDROXIDE [Concomitant]
     Dosage: 45ML PER DAY
     Dates: start: 20011221, end: 20020327
  6. MAGNESIUM OXIDE [Concomitant]
     Dosage: 3G PER DAY
     Route: 048
     Dates: start: 20011217, end: 20020327
  7. MORPHINE SULFATE [Concomitant]
     Dosage: 20MG PER DAY
     Route: 048
     Dates: start: 20020316, end: 20020327
  8. CONCENTRATED GLYCERIN + FRUCTOSE [Concomitant]
     Dosage: 400ML PER DAY
     Dates: start: 20020323, end: 20020521
  9. ONDANSETRON HYDROCHLORIDE [Concomitant]
     Dosage: 4MG PER DAY
     Route: 042
     Dates: start: 20020325, end: 20020329
  10. MORPHINE HYDROCHLORIDE [Concomitant]
     Dosage: 5MG PER DAY
     Dates: start: 20020327, end: 20020603

REACTIONS (5)
  - BLOOD LACTATE DEHYDROGENASE INCREASED [None]
  - C-REACTIVE PROTEIN INCREASED [None]
  - HEPATIC FUNCTION ABNORMAL [None]
  - LEUKOPENIA [None]
  - THROMBOCYTOPENIA [None]
